FAERS Safety Report 19293000 (Version 2)
Quarter: 2021Q3

REPORT INFORMATION
  Report Type: Spontaneous
  Country: US (occurrence: US)
  Receive Date: 20210524
  Receipt Date: 20210804
  Transmission Date: 20211014
  Serious: No
  Sender: FDA-Public Use
  Company Number: US-BIOGEN-2021BI01012856

PATIENT
  Sex: Female

DRUGS (1)
  1. TYSABRI [Suspect]
     Active Substance: NATALIZUMAB
     Indication: MULTIPLE SCLEROSIS
     Route: 065
     Dates: start: 20200625

REACTIONS (5)
  - Cognitive disorder [Unknown]
  - Nasopharyngitis [Unknown]
  - Anxiety [Unknown]
  - Pruritus [Unknown]
  - Drug specific antibody present [Unknown]
